FAERS Safety Report 24576986 (Version 1)
Quarter: 2024Q4

REPORT INFORMATION
  Report Type: Spontaneous
  Country: RU (occurrence: RU)
  Receive Date: 20241104
  Receipt Date: 20241104
  Transmission Date: 20250114
  Serious: Yes (Other)
  Sender: MERCK
  Company Number: RU-009507513-2410RUS013149

PATIENT
  Age: 13 Year
  Sex: Male
  Weight: 38 kg

DRUGS (1)
  1. KEYTRUDA [Suspect]
     Active Substance: PEMBROLIZUMAB
     Indication: Hodgkin^s disease
     Dosage: PATIENT RECEIVED 4 INJECTIONS OF PEMBROLIZUMAB WITH 3 WEEKS INTERVAL
     Dates: start: 20220922, end: 20221207

REACTIONS (3)
  - Tumour pseudoprogression [Unknown]
  - Neutropenia [Recovered/Resolved]
  - Anaemia [Recovered/Resolved]

NARRATIVE: CASE EVENT DATE: 20220101
